FAERS Safety Report 6109355-3 (Version None)
Quarter: 2009Q1

REPORT INFORMATION
  Report Type: 
  Country: None (occurrence: None)
  Receive Date: 20090310
  Receipt Date: 20090227
  Transmission Date: 20090719
  Serious: Yes (Other)
  Sender: FDA-Public Use
  Company Number: GB-BAXTER-2009BH003500

PATIENT
  Age: 33 Year
  Sex: Female
  Weight: 81 kg

DRUGS (13)
  1. IGIV, UNSPECIFIED PRODUCT [Suspect]
     Indication: DRUG USE FOR UNKNOWN INDICATION
     Route: 042
  2. FORANE [Suspect]
     Indication: ANAESTHESIA
     Route: 055
  3. ALFENTANIL [Suspect]
     Indication: DRUG USE FOR UNKNOWN INDICATION
     Route: 065
  4. ASPIRIN [Suspect]
     Indication: ANTIPHOSPHOLIPID SYNDROME
     Route: 065
  5. AZATHIOPRINE [Suspect]
     Indication: IDIOPATHIC THROMBOCYTOPENIC PURPURA
     Route: 065
  6. METOCLOPRAMIDE HYDROCHLORIDE [Suspect]
     Indication: DRUG USE FOR UNKNOWN INDICATION
     Route: 042
  7. PROTAMINE SULFATE [Suspect]
     Indication: DRUG USE FOR UNKNOWN INDICATION
     Route: 065
  8. RANITIDINE [Suspect]
     Indication: DRUG USE FOR UNKNOWN INDICATION
     Route: 042
  9. SODIUM CITRATE [Suspect]
     Indication: DRUG USE FOR UNKNOWN INDICATION
     Route: 048
  10. SUCCINYLCHOLINE CHLORIDE [Suspect]
     Indication: DRUG USE FOR UNKNOWN INDICATION
     Route: 065
  11. THIOPENTAL SODIUM [Suspect]
     Indication: DRUG USE FOR UNKNOWN INDICATION
     Route: 065
  12. DALTEPARIN SODIUM [Suspect]
     Indication: ANTIPHOSPHOLIPID SYNDROME
     Route: 065
  13. DALTEPARIN SODIUM [Suspect]
     Route: 065

REACTIONS (15)
  - ACTIVATED PARTIAL THROMBOPLASTIN TIME PROLONGED [None]
  - BASE EXCESS [None]
  - BLOOD PRESSURE DECREASED [None]
  - DRUG EXPOSURE DURING PREGNANCY [None]
  - FOETAL MALPRESENTATION [None]
  - HAEMOGLOBIN DECREASED [None]
  - HEART RATE INCREASED [None]
  - HYPOCOAGULABLE STATE [None]
  - IDIOPATHIC THROMBOCYTOPENIC PURPURA [None]
  - IMMOBILE [None]
  - ISCHAEMIC STROKE [None]
  - NO THERAPEUTIC RESPONSE [None]
  - PREMATURE LABOUR [None]
  - PREMATURE RUPTURE OF MEMBRANES [None]
  - PROCEDURAL PAIN [None]
